FAERS Safety Report 9502623 (Version 1)
Quarter: 2013Q3

REPORT INFORMATION
  Report Type: Spontaneous
  Country: KR (occurrence: KR)
  Receive Date: 20130906
  Receipt Date: 20130906
  Transmission Date: 20140515
  Serious: Yes (Death, Life-Threatening, Hospitalization)
  Sender: FDA-Public Use
  Company Number: KR-ACCORD-019282

PATIENT
  Age: 62 Year
  Sex: Male

DRUGS (3)
  1. CILOSTAZOL [Suspect]
     Indication: ACUTE MYOCARDIAL INFARCTION
  2. CLOPIDOGREL [Suspect]
     Indication: ACUTE MYOCARDIAL INFARCTION
  3. ASPIRIN [Suspect]
     Indication: ACUTE MYOCARDIAL INFARCTION

REACTIONS (3)
  - Pulmonary alveolar haemorrhage [Recovering/Resolving]
  - Acute respiratory failure [Recovering/Resolving]
  - Ventricular fibrillation [Fatal]
